FAERS Safety Report 18338624 (Version 1)
Quarter: 2020Q3

REPORT INFORMATION
  Report Type: Spontaneous
  Country: US (occurrence: US)
  Receive Date: 20200928
  Receipt Date: 20200928
  Transmission Date: 20201103
  Serious: No
  Sender: FDA-Public Use
  Company Number: None

PATIENT
  Sex: Female

DRUGS (3)
  1. HYDROXYCHLOROQUINE [Suspect]
     Active Substance: HYDROXYCHLOROQUINE
  2. CEFTRIAXONE. [Suspect]
     Active Substance: CEFTRIAXONE
     Indication: COVID-19
     Dates: start: 2020
  3. AZITHROMYCIN ANHYDROUS. [Suspect]
     Active Substance: AZITHROMYCIN ANHYDROUS

REACTIONS (10)
  - Caesarean section [None]
  - Product use issue [None]
  - Acute respiratory distress syndrome [None]
  - Foetal exposure during pregnancy [None]
  - Pulmonary alveolar haemorrhage [None]
  - Hypoxia [None]
  - Haemodynamic instability [None]
  - Twin pregnancy [None]
  - Premature baby [None]
  - Maternal exposure during pregnancy [None]
